FAERS Safety Report 13457117 (Version 1)
Quarter: 2017Q2

REPORT INFORMATION
  Report Type: Spontaneous
  Country: CN (occurrence: CN)
  Receive Date: 20170419
  Receipt Date: 20170419
  Transmission Date: 20170830
  Serious: Yes (Other)
  Sender: FDA-Public Use
  Company Number: CN-009507513-1704CHN006722

PATIENT
  Age: 72 Year
  Sex: Female
  Weight: 60 kg

DRUGS (2)
  1. ZOCOR [Suspect]
     Active Substance: SIMVASTATIN
     Indication: LIPIDS ABNORMAL
     Dosage: 40 MG, QD
     Route: 048
     Dates: start: 20170203, end: 20170205
  2. FUROSEMIDE. [Suspect]
     Active Substance: FUROSEMIDE
     Indication: POLYURIA
     Dosage: 20 MG, QD
     Route: 048
     Dates: start: 20170203, end: 20170205

REACTIONS (1)
  - Pancreatic injury [Recovering/Resolving]

NARRATIVE: CASE EVENT DATE: 20170205
